FAERS Safety Report 21133261 (Version 1)
Quarter: 2022Q3

REPORT INFORMATION
  Report Type: Spontaneous
  Country: US (occurrence: US)
  Receive Date: 20220726
  Receipt Date: 20220726
  Transmission Date: 20221027
  Serious: Yes (Death, Other)
  Sender: FDA-Public Use
  Company Number: US-BIOVITRUM-2022US09036

PATIENT
  Age: 12 Year
  Sex: Male

DRUGS (2)
  1. ANAKINRA [Suspect]
     Active Substance: ANAKINRA
     Indication: Still^s disease
  2. PREDNISONE [Suspect]
     Active Substance: PREDNISONE
     Indication: Still^s disease

REACTIONS (3)
  - Pericarditis [Fatal]
  - Myocarditis [Fatal]
  - Off label use [Unknown]
